FAERS Safety Report 17942533 (Version 2)
Quarter: 2020Q3

REPORT INFORMATION
  Report Type: Spontaneous
  Country: US (occurrence: US)
  Receive Date: 20200625
  Receipt Date: 20200824
  Transmission Date: 20201103
  Serious: No
  Sender: FDA-Public Use
  Company Number: US-BIOGEN-2020BI00886869

PATIENT
  Age: 46 Year
  Sex: Female

DRUGS (2)
  1. TECFIDERA [Suspect]
     Active Substance: DIMETHYL FUMARATE
     Route: 065
     Dates: start: 20200609
  2. TECFIDERA [Suspect]
     Active Substance: DIMETHYL FUMARATE
     Indication: MULTIPLE SCLEROSIS
     Route: 048
     Dates: start: 202006

REACTIONS (6)
  - Erythema [Unknown]
  - Feeling abnormal [Unknown]
  - Hot flush [Recovered/Resolved]
  - Swelling face [Unknown]
  - Hypersensitivity [Unknown]
  - Burning sensation [Unknown]

NARRATIVE: CASE EVENT DATE: 20200612
